FAERS Safety Report 11068496 (Version 2)
Quarter: 2015Q2

REPORT INFORMATION
  Report Type: Spontaneous
  Country: US (occurrence: US)
  Receive Date: 20150427
  Receipt Date: 20150428
  Transmission Date: 20150821
  Serious: No
  Sender: FDA-Public Use
  Company Number: US-PFIZER INC-2015135165

PATIENT
  Sex: Male

DRUGS (1)
  1. ADVIL ALLERGY AND CONGESTION RELIEF [Suspect]
     Active Substance: CHLORPHENIRAMINE MALEATE\IBUPROFEN\PHENYLEPHRINE HYDROCHLORIDE
     Dosage: 1 DF, UNK

REACTIONS (2)
  - Expired product administered [Unknown]
  - Somnolence [Unknown]

NARRATIVE: CASE EVENT DATE: 20150412
